FAERS Safety Report 18334657 (Version 3)
Quarter: 2022Q2

REPORT INFORMATION
  Report Type: Spontaneous
  Country: US (occurrence: US)
  Receive Date: 20201001
  Receipt Date: 20220407
  Transmission Date: 20220720
  Serious: Yes (Other)
  Sender: FDA-Public Use
  Company Number: US-PFIZER INC-2020378130

PATIENT
  Age: 54 Year
  Sex: Male

DRUGS (2)
  1. SOMAVERT [Suspect]
     Active Substance: PEGVISOMANT
     Indication: Acromegaly
     Dosage: UNK
     Dates: start: 20130911
  2. SOMAVERT [Suspect]
     Active Substance: PEGVISOMANT
     Dosage: 15 MG [SOMAVERT SDV 15 MG]
     Dates: start: 20201230

REACTIONS (2)
  - Chronic myeloid leukaemia [Unknown]
  - Loose tooth [Unknown]
